FAERS Safety Report 5895605-5 (Version None)
Quarter: 2008Q3

REPORT INFORMATION
  Report Type: 
  Country: None (occurrence: None)
  Receive Date: 20080924
  Receipt Date: 20080115
  Transmission Date: 20090109
  Serious: Yes (Hospitalization)
  Sender: FDA-Public Use
  Company Number: US-ASTRAZENECA-2006UW11229

PATIENT
  Age: 47 Year
  Sex: Male
  Weight: 99.3 kg

DRUGS (22)
  1. SEROQUEL [Suspect]
     Indication: SCHIZOPHRENIA
     Route: 048
     Dates: start: 20010427, end: 20070607
  2. SEROQUEL [Suspect]
     Indication: DEPRESSION
     Route: 048
     Dates: start: 20010427, end: 20070607
  3. SEROQUEL [Suspect]
     Route: 048
     Dates: start: 20070101, end: 20070601
  4. SEROQUEL [Suspect]
     Route: 048
     Dates: start: 20070101, end: 20070601
  5. ZYPREXA [Suspect]
     Dates: start: 20000526, end: 20030901
  6. CLOZARIL [Concomitant]
     Dates: start: 20011127
  7. GEODON [Concomitant]
     Dosage: 10 TO 15MG
     Dates: start: 20011003
  8. RISPERDAL [Concomitant]
  9. THORAZINE [Concomitant]
  10. TRILAFON [Concomitant]
  11. BENZTROPINE MESYLATE [Concomitant]
  12. ZOLOFT [Concomitant]
     Dates: start: 20011003, end: 20030901
  13. CELEXA [Concomitant]
  14. MULTI-VITAMIN [Concomitant]
  15. HYDROCHLOROTHIAZIDE [Concomitant]
  16. TRAZODONE HCL [Concomitant]
  17. DESYREL [Concomitant]
     Dates: end: 20030901
  18. INSULIN [Concomitant]
     Dosage: 40 UNITS AM
  19. NAVANE [Concomitant]
     Route: 048
  20. COGENTIN [Concomitant]
     Route: 048
  21. METOPROLOL TARTRATE [Concomitant]
     Route: 048
  22. PROTONIX [Concomitant]
     Route: 048

REACTIONS (5)
  - DIABETIC KETOACIDOSIS [None]
  - HYPOKALAEMIA [None]
  - PANCREATITIS ACUTE [None]
  - SINUS TACHYCARDIA [None]
  - TYPE 2 DIABETES MELLITUS [None]
